FAERS Safety Report 6066981-8 (Version None)
Quarter: 2009Q1

REPORT INFORMATION
  Report Type: 
  Country: None (occurrence: None)
  Receive Date: 20090205
  Receipt Date: 20090101
  Transmission Date: 20090719
  Serious: No
  Sender: FDA-Public Use
  Company Number: US-ABBOTT-09P-163-0495634-00

PATIENT
  Age: 26 Year
  Sex: Female

DRUGS (2)
  1. VICODIN [Suspect]
     Indication: TOOTHACHE
     Dosage: 1-2 TABLETS AS REQUIRED
  2. VICODIN [Suspect]
     Indication: ORAL SURGERY

REACTIONS (2)
  - MALAISE [None]
  - VOMITING [None]
